FAERS Safety Report 15775913 (Version 1)
Quarter: 2018Q4

REPORT INFORMATION
  Report Type: Spontaneous
  Country: AT (occurrence: AT)
  Receive Date: 20181231
  Receipt Date: 20181231
  Transmission Date: 20190205
  Serious: Yes (Hospitalization, Other)
  Sender: FDA-Public Use
  Company Number: AT-ACCORD-060297

PATIENT
  Age: 47 Year
  Sex: Female

DRUGS (5)
  1. ESCITALOPRAM [Suspect]
     Active Substance: ESCITALOPRAM OXALATE
     Indication: PRODUCT USED FOR UNKNOWN INDICATION
     Dosage: ALSO RECEIVED AT DOSE OF 5 MG FROM 16-AUG-2017 TO 20-AUG-2017.
     Route: 048
     Dates: start: 20170821, end: 20170824
  2. XANOR [Concomitant]
     Active Substance: ALPRAZOLAM
     Dates: start: 20170821, end: 20170824
  3. ALPRAZOLAM. [Suspect]
     Active Substance: ALPRAZOLAM
     Indication: PRODUCT USED FOR UNKNOWN INDICATION
     Dosage: ALSO RECEIVED 1 MG
     Route: 065
     Dates: start: 20170821, end: 20170824
  4. SEROPRAM (CITALOPRAM HYDROBROMIDE) [Suspect]
     Active Substance: CITALOPRAM HYDROBROMIDE
     Indication: PRODUCT USED FOR UNKNOWN INDICATION
     Dosage: STRENGTH: 20 MG?8 INFUSIONS TOTAL
     Route: 042
     Dates: start: 20170817, end: 20170824
  5. TEMESTA [Concomitant]
     Route: 048

REACTIONS (3)
  - Anxiety disorder [Unknown]
  - Paraesthesia [Recovered/Resolved]
  - Serotonin syndrome [Recovered/Resolved]

NARRATIVE: CASE EVENT DATE: 20170817
